FAERS Safety Report 15233657 (Version 4)
Quarter: 2018Q3

REPORT INFORMATION
  Report Type: Spontaneous
  Country: US (occurrence: US)
  Receive Date: 20180802
  Receipt Date: 20180831
  Transmission Date: 20181010
  Serious: Yes (Death, Hospitalization, Other)
  Sender: FDA-Public Use
  Company Number: US-PFIZER INC-2018089738

PATIENT
  Age: 78 Year
  Sex: Male
  Weight: 91 kg

DRUGS (7)
  1. IBRANCE [Suspect]
     Active Substance: PALBOCICLIB
     Dosage: 125 MG, CYCLIC (21DAYS OF 7 DAYS)
     Route: 048
     Dates: start: 20180420
  2. IBRANCE [Suspect]
     Active Substance: PALBOCICLIB
     Indication: LUNG CANCER METASTATIC
     Dosage: 125 MG, CYCLIC (21DAYS OF 7 DAYS)
     Route: 048
     Dates: start: 20180302
  3. IBRANCE [Suspect]
     Active Substance: PALBOCICLIB
     Indication: NON-SMALL CELL LUNG CANCER
     Dosage: 125 MG, CYCLIC (21DAYS OF 7 DAYS)
     Route: 048
     Dates: start: 20180305
  4. IBRANCE [Suspect]
     Active Substance: PALBOCICLIB
     Dosage: 125 MG, CYCLIC (21DAYS OF 7 DAYS)
     Route: 048
     Dates: start: 20180323
  5. IBRANCE [Suspect]
     Active Substance: PALBOCICLIB
     Dosage: 125 MG, CYCLIC (21DAYS OF 7 DAYS)
     Route: 048
     Dates: start: 20180518
  6. IBRANCE [Suspect]
     Active Substance: PALBOCICLIB
     Dosage: 125 MG, DAILY (21DAYS OF 7 DAYS)
     Route: 048
     Dates: end: 20180726
  7. GENERIC LOVENOX [Concomitant]
     Indication: ANTICOAGULANT THERAPY
     Dosage: 100 MG, 1X/DAY (EVERY MORNING)

REACTIONS (8)
  - Tumour haemorrhage [Unknown]
  - Infection [Unknown]
  - Shock haemorrhagic [Fatal]
  - Neoplasm progression [Fatal]
  - Shock [Unknown]
  - Malaise [Unknown]
  - Renal disorder [Unknown]
  - Product use in unapproved indication [Unknown]

NARRATIVE: CASE EVENT DATE: 20180726
